FAERS Safety Report 25884493 (Version 1)
Quarter: 2025Q4

REPORT INFORMATION
  Report Type: Spontaneous
  Country: EU (occurrence: EU)
  Receive Date: 20251006
  Receipt Date: 20251006
  Transmission Date: 20260117
  Serious: Yes (Other)
  Sender: AZURITY PHARMACEUTICALS
  Company Number: EU-COVIS PHARMA-AZR202509-002973

PATIENT
  Sex: Female

DRUGS (3)
  1. ACLIDINIUM BROMIDE\FORMOTEROL FUMARATE [Suspect]
     Active Substance: ACLIDINIUM BROMIDE\FORMOTEROL FUMARATE
     Indication: Chronic obstructive pulmonary disease
     Dosage: UNK
     Dates: start: 202202
  2. ACLIDINIUM BROMIDE\FORMOTEROL FUMARATE [Suspect]
     Active Substance: ACLIDINIUM BROMIDE\FORMOTEROL FUMARATE
     Dosage: UNK
     Dates: start: 20250905
  3. DEVICE [Suspect]
     Active Substance: DEVICE
     Indication: Chronic obstructive pulmonary disease
     Dosage: UNK
     Dates: start: 20250905

REACTIONS (3)
  - Pneumonia [Unknown]
  - Product dose omission issue [Unknown]
  - Device malfunction [Unknown]

NARRATIVE: CASE EVENT DATE: 20250901
